FAERS Safety Report 13533041 (Version 4)
Quarter: 2019Q3

REPORT INFORMATION
  Report Type: Spontaneous
  Country: US (occurrence: US)
  Receive Date: 20170510
  Receipt Date: 20190719
  Transmission Date: 20191004
  Serious: No
  Sender: FDA-Public Use
  Company Number: US-LUNDBECK-DKLU2029925

PATIENT
  Age: 77 Year
  Sex: Female

DRUGS (11)
  1. MIDODRINE [Suspect]
     Active Substance: MIDODRINE
     Indication: PRODUCT USED FOR UNKNOWN INDICATION
     Route: 065
  2. NORTHERA [Suspect]
     Active Substance: DROXIDOPA
     Indication: AUTONOMIC NEUROPATHY
     Dosage: SCHEDULE B AND TITRATING
     Route: 048
     Dates: start: 20170420
  3. NORTHERA [Suspect]
     Active Substance: DROXIDOPA
     Route: 048
     Dates: start: 20180724
  4. NORTHERA [Suspect]
     Active Substance: DROXIDOPA
     Dosage: TITRATION B SCHEDULE
     Route: 048
     Dates: start: 20170513
  5. NORTHERA [Suspect]
     Active Substance: DROXIDOPA
     Route: 048
     Dates: end: 20170512
  6. NORTHERA [Suspect]
     Active Substance: DROXIDOPA
     Route: 048
  7. NORTHERA [Suspect]
     Active Substance: DROXIDOPA
     Dosage: UNIT DOSE IS 100-200 MG HS
     Route: 048
     Dates: start: 20180724
  8. NORTHERA [Suspect]
     Active Substance: DROXIDOPA
     Indication: SYNCOPE
     Dosage: 48 HOUR TITRATION SCHEDULE
     Route: 048
     Dates: start: 20170418
  9. NORTHERA [Suspect]
     Active Substance: DROXIDOPA
     Dosage: SCHEDULE B AND TITRATING
     Route: 048
  10. PREDNISONE. [Concomitant]
     Active Substance: PREDNISONE
     Indication: PRODUCT USED FOR UNKNOWN INDICATION
     Route: 065
     Dates: start: 20190711
  11. NORTHERA [Suspect]
     Active Substance: DROXIDOPA
     Route: 048
     Dates: start: 20180724

REACTIONS (10)
  - Flushing [Not Recovered/Not Resolved]
  - Blood pressure immeasurable [Not Recovered/Not Resolved]
  - Blood pressure increased [Unknown]
  - Drug ineffective [Unknown]
  - Asthenia [Unknown]
  - Dysstasia [Not Recovered/Not Resolved]
  - Sinus headache [Unknown]
  - Dizziness [Unknown]
  - Fatigue [Unknown]
  - Headache [Recovering/Resolving]

NARRATIVE: CASE EVENT DATE: 20170420
